FAERS Safety Report 14384971 (Version 3)
Quarter: 2018Q1

REPORT INFORMATION
  Report Type: Spontaneous
  Country: FR (occurrence: FR)
  Receive Date: 20180115
  Receipt Date: 20180305
  Transmission Date: 20180509
  Serious: Yes (Death, Other)
  Sender: FDA-Public Use
  Company Number: FR-MYLANLABS-2018M1001154

PATIENT
  Age: 19 Year
  Sex: Female

DRUGS (2)
  1. SUFENTANIL [Suspect]
     Active Substance: SUFENTANIL
     Indication: ANALGESIC THERAPY
     Dosage: 7.5MG; INTRAOPERATIVE
     Route: 042
  2. KETAMINE [Suspect]
     Active Substance: KETAMINE
     Indication: ANALGESIC THERAPY
     Dosage: 15MG; INTRAOPERATIVE
     Route: 042

REACTIONS (9)
  - Respiratory failure [Fatal]
  - Exposure during pregnancy [Unknown]
  - Postpartum haemorrhage [Unknown]
  - Anaemia [Recovered/Resolved]
  - Tachycardia [Unknown]
  - Cardiac arrest [Fatal]
  - Urine output decreased [Unknown]
  - Acute respiratory distress syndrome [Fatal]
  - Agitation [Unknown]
